FAERS Safety Report 11939432 (Version 1)
Quarter: 2016Q1

REPORT INFORMATION
  Report Type: Spontaneous
  Country: US (occurrence: US)
  Receive Date: 20160122
  Receipt Date: 20160122
  Transmission Date: 20160526
  Serious: No
  Sender: FDA-Public Use
  Company Number: US-GLAXOSMITHKLINE-US2016GSK004427

PATIENT
  Sex: Male

DRUGS (1)
  1. ROPINIROLE TABLET [Suspect]
     Active Substance: ROPINIROLE
     Indication: RESTLESS LEGS SYNDROME
     Dosage: UNK (2 MG)
     Dates: start: 2008

REACTIONS (2)
  - Dyskinesia [Unknown]
  - Drug ineffective [Unknown]
